FAERS Safety Report 24420202 (Version 2)
Quarter: 2024Q4

REPORT INFORMATION
  Report Type: Spontaneous
  Country: CN (occurrence: CN)
  Receive Date: 20241010
  Receipt Date: 20241018
  Transmission Date: 20250114
  Serious: No
  Sender: ROCHE
  Company Number: CN-BoehringerIngelheim-2024-BI-017209

PATIENT
  Age: 60 Year
  Sex: Female
  Weight: 65.0 kg

DRUGS (2)
  1. ALTEPLASE [Suspect]
     Active Substance: ALTEPLASE
     Indication: Thrombolysis
     Dosage: (TOTAL 10%) WAS INTRAVENOUSLY INJECTED FOR 1 MINUTE
     Route: 042
     Dates: start: 20240303, end: 20240303
  2. ALTEPLASE [Suspect]
     Active Substance: ALTEPLASE
     Dosage: PUMPED WITH A MICRO-PUMP (TOTAL 90%) FOR 1 HOUR
     Route: 042
     Dates: start: 20240303, end: 20240303

REACTIONS (2)
  - Mucosal haemorrhage [Recovering/Resolving]
  - Haemorrhage urinary tract [Recovering/Resolving]

NARRATIVE: CASE EVENT DATE: 20240303
